FAERS Safety Report 7259778-4 (Version None)
Quarter: 2011Q1

REPORT INFORMATION
  Report Type: 
  Country: None (occurrence: None)
  Receive Date: 20110130
  Receipt Date: 20100903
  Transmission Date: 20110831
  Serious: No
  Sender: FDA-Public Use
  Company Number: US-ABBOTT-10P-163-0668815-00

PATIENT
  Age: 33 Year
  Sex: Female

DRUGS (5)
  1. HUMIRA [Suspect]
     Indication: CROHN'S DISEASE
  2. HUMIRA [Suspect]
     Indication: COLITIS
     Dates: start: 20100823
  3. SULFASALAZINE [Concomitant]
     Indication: COLITIS
  4. HYDROCODONE [Concomitant]
     Indication: ARTHRALGIA
  5. FOLIC ACID [Concomitant]
     Indication: PRODUCT USED FOR UNKNOWN INDICATION

REACTIONS (4)
  - JOINT SWELLING [None]
  - OROPHARYNGEAL PAIN [None]
  - PYREXIA [None]
  - FATIGUE [None]
